FAERS Safety Report 14381105 (Version 1)
Quarter: 2018Q1

REPORT INFORMATION
  Report Type: Spontaneous
  Country: CN (occurrence: CN)
  Receive Date: 20180112
  Receipt Date: 20180112
  Transmission Date: 20180509
  Serious: Yes (Other)
  Sender: FDA-Public Use
  Company Number: CN-SA-2018SA004572

PATIENT
  Age: 54 Year
  Sex: Male
  Weight: 75 kg

DRUGS (3)
  1. CLOPIDOGREL BISULFATE. [Suspect]
     Active Substance: CLOPIDOGREL BISULFATE
     Indication: PLATELET DISORDER
     Route: 048
     Dates: start: 20171121, end: 20171121
  2. ASPIRIN. [Suspect]
     Active Substance: ASPIRIN
     Indication: HYPERTENSION
     Dosage: TWICE PER THREE DAYS
     Route: 048
     Dates: start: 20171119, end: 20171121
  3. ASPIRIN. [Suspect]
     Active Substance: ASPIRIN
     Indication: PLATELET DISORDER
     Dosage: TWICE PER THREE DAYS
     Route: 048
     Dates: start: 20171119, end: 20171121

REACTIONS (2)
  - Gastrointestinal haemorrhage [Recovering/Resolving]
  - Syncope [Recovering/Resolving]

NARRATIVE: CASE EVENT DATE: 20171121
